FAERS Safety Report 14329567 (Version 1)
Quarter: 2017Q4

REPORT INFORMATION
  Report Type: Spontaneous
  Country: US (occurrence: US)
  Receive Date: 20171227
  Receipt Date: 20171227
  Transmission Date: 20180321
  Serious: No
  Sender: FDA-Public Use
  Company Number: US-AVEDRO-AVE-2017-0271-AE

PATIENT
  Age: 49 Year
  Sex: Male

DRUGS (3)
  1. PHOTREXA VISCOUS [Suspect]
     Active Substance: RIBOFLAVIN 5^-PHOSPHATE SODIUM
     Dosage: 1 DROP EVERY 2 MINUTES FOR 30 MINUTES (1 DROP WAS MISSED) DURING IRRADIATION
     Route: 047
     Dates: start: 20171003, end: 20171003
  2. PHOTREXA VISCOUS [Suspect]
     Active Substance: RIBOFLAVIN 5^-PHOSPHATE SODIUM
     Indication: KERATOCONUS
     Dosage: 1 DROP EVERY 2 MINUTES FOR 30 MINUTES DURING INITIAL SOAK
     Route: 047
     Dates: start: 20171003, end: 20171003
  3. KXL SYSTEM [Suspect]
     Active Substance: DEVICE
     Indication: KERATOCONUS
     Route: 047
     Dates: start: 20171003, end: 20171003

REACTIONS (3)
  - Therapy cessation [Unknown]
  - Incorrect dose administered [Unknown]
  - No adverse event [Unknown]

NARRATIVE: CASE EVENT DATE: 20171003
